FAERS Safety Report 13939673 (Version 2)
Quarter: 2019Q1

REPORT INFORMATION
  Report Type: Spontaneous
  Country: US (occurrence: US)
  Receive Date: 20170906
  Receipt Date: 20190218
  Transmission Date: 20190417
  Serious: Yes (Other)
  Sender: FDA-Public Use
  Company Number: US-JNJFOC-20170827756

PATIENT

DRUGS (14)
  1. LOPERAMIDE HYDROCHLORIDE. [Suspect]
     Active Substance: LOPERAMIDE HYDROCHLORIDE
     Indication: PRODUCT USED FOR UNKNOWN INDICATION
     Dosage: THE MOST COMMON REPORTED DOSE WAS 200 MG
     Route: 065
  2. METHYLPHENIDATE. [Concomitant]
     Active Substance: METHYLPHENIDATE
     Route: 065
  3. NAPROXEN. [Concomitant]
     Active Substance: NAPROXEN
     Route: 065
  4. AMLODIPINE [Concomitant]
     Active Substance: AMLODIPINE BESYLATE
     Route: 065
  5. PHENYLEPHRINE [Concomitant]
     Active Substance: PHENYLEPHRINE\PHENYLEPHRINE HYDROCHLORIDE
     Route: 065
  6. NYSTATIN. [Concomitant]
     Active Substance: NYSTATIN
     Route: 065
  7. LEVETIRACETAM. [Concomitant]
     Active Substance: LEVETIRACETAM
     Route: 065
  8. CIMETIDINE [Concomitant]
     Active Substance: CIMETIDINE
     Route: 065
  9. ASPIRIN. [Concomitant]
     Active Substance: ASPIRIN
     Route: 065
  10. DIAZEPAM. [Concomitant]
     Active Substance: DIAZEPAM
     Route: 065
  11. RISPERIDONE. [Concomitant]
     Active Substance: RISPERIDONE
     Route: 065
  12. LOPERAMIDE HYDROCHLORIDE. [Suspect]
     Active Substance: LOPERAMIDE HYDROCHLORIDE
     Route: 065
  13. DEXTROMETHORPHAN [Concomitant]
     Active Substance: DEXTROMETHORPHAN
     Route: 065
  14. METOCLOPRAMIDE. [Concomitant]
     Active Substance: METOCLOPRAMIDE
     Route: 065

REACTIONS (29)
  - Ventricular arrhythmia [Unknown]
  - Myocardial infarction [Unknown]
  - Rhabdomyolysis [Unknown]
  - Acute kidney injury [Unknown]
  - Seizure [Unknown]
  - Substance-induced psychotic disorder [Unknown]
  - Pneumonia aspiration [Unknown]
  - Leukocytosis [Unknown]
  - Electrocardiogram QRS complex prolonged [Unknown]
  - Bradypnoea [Unknown]
  - Tachycardia [Unknown]
  - Hyperreflexia [Unknown]
  - Metabolic acidosis [Unknown]
  - Drug abuse [Unknown]
  - Accidental exposure to product by child [Unknown]
  - Suicide attempt [Unknown]
  - Toxicity to various agents [Unknown]
  - Bradycardia [Unknown]
  - Intentional product misuse [Unknown]
  - Hypotension [Unknown]
  - Atrioventricular block first degree [Unknown]
  - Intentional overdose [Unknown]
  - Intentional self-injury [Unknown]
  - Electrocardiogram QT prolonged [Unknown]
  - Coma [Unknown]
  - Depressed level of consciousness [Unknown]
  - Delirium [Unknown]
  - Hypoglycaemia [Unknown]
  - Haemolysis [Unknown]
